FAERS Safety Report 8772711 (Version 2)
Quarter: 2012Q4

REPORT INFORMATION
  Report Type: 
  Country: IT (occurrence: IT)
  Receive Date: 20120905
  Receipt Date: 20120926
  Transmission Date: 20130627
  Serious: Yes (Other)
  Sender: FDA-Public Use
  Company Number: IT-PFIZER INC-2012215971

PATIENT
  Age: 70 Year
  Sex: Female
  Weight: 66 kg

DRUGS (3)
  1. CRIZOTINIB [Suspect]
     Indication: LUNG NEOPLASM MALIGNANT
     Dosage: 250 mg, 2x/day
     Route: 048
     Dates: start: 20120627, end: 20120824
  2. CLEXANE [Concomitant]
     Indication: THROMBOSIS
     Dosage: 4000 IU, 2x/day
     Route: 058
     Dates: start: 20120405
  3. SIMESTAT [Concomitant]
     Indication: DYSLIPIDAEMIA
     Dosage: 10 mg, 1x/day
     Route: 048
     Dates: start: 20120405, end: 20120824

REACTIONS (4)
  - Alanine aminotransferase increased [Recovering/Resolving]
  - Aspartate aminotransferase increased [Recovering/Resolving]
  - Blood alkaline phosphatase increased [Recovering/Resolving]
  - Gamma-glutamyltransferase increased [Recovering/Resolving]
